FAERS Safety Report 4467169-4 (Version None)
Quarter: 2004Q4

REPORT INFORMATION
  Report Type: 
  Country: None (occurrence: None)
  Receive Date: 20041004
  Receipt Date: 20041004
  Transmission Date: 20050328
  Serious: No
  Sender: FDA-Public Use
  Company Number: None

PATIENT
  Age: 48 Year
  Sex: Female

DRUGS (3)
  1. FLUOROURACIL [Suspect]
     Indication: ANAL CANCER
     Dosage: 1000 MG/M2 IV
     Route: 042
     Dates: start: 20040719, end: 20040820
  2. MITOMYCIN-C BULK POWDER [Suspect]
     Indication: ANAL CANCER
     Dosage: 10 MG/M2 IV
     Route: 042
     Dates: start: 20040719, end: 20040827
  3. RADIATION THERAPY [Suspect]
     Dosage: 1.8 GY AND 2.0 GY LAST 5 DAYS

REACTIONS (2)
  - CHILLS [None]
  - PYREXIA [None]
